FAERS Safety Report 15325137 (Version 1)
Quarter: 2018Q3

REPORT INFORMATION
  Report Type: Spontaneous
  Country: US (occurrence: US)
  Receive Date: 20180822
  Receipt Date: 20180822
  Transmission Date: 20181010
  Serious: Yes (Hospitalization)
  Sender: FDA-Public Use
  Company Number: None

PATIENT
  Age: 18 Year
  Sex: Female

DRUGS (7)
  1. ALBUTEROL. [Concomitant]
     Active Substance: ALBUTEROL
  2. SODIUM CHLORIDE. [Concomitant]
     Active Substance: SODIUM CHLORIDE
  3. COLISTIMETHATE [Concomitant]
     Active Substance: COLISTIMETHATE SODIUM
  4. AQUADEKS CHEWS [Concomitant]
  5. PROVENTIL [Concomitant]
     Active Substance: ALBUTEROL
  6. TOBI PODHALER [Suspect]
     Active Substance: TOBRAMYCIN
     Indication: CYSTIC FIBROSIS
     Route: 055
     Dates: start: 20180706
  7. CETIRIZINE [Concomitant]
     Active Substance: CETIRIZINE HYDROCHLORIDE

REACTIONS (1)
  - Respiratory fume inhalation disorder [None]
